FAERS Safety Report 7520403-6 (Version None)
Quarter: 2011Q2

REPORT INFORMATION
  Report Type: 
  Country: None (occurrence: None)
  Receive Date: 20110602
  Receipt Date: 20110128
  Transmission Date: 20111010
  Serious: Yes (Other)
  Sender: FDA-Public Use
  Company Number: US-BAYER-201036200NA

PATIENT
  Age: 34 Year
  Sex: Female
  Weight: 90.249 kg

DRUGS (1)
  1. YAZ [Suspect]
     Indication: PRODUCT USED FOR UNKNOWN INDICATION
     Dosage: UNK UNK, UNK
     Route: 048
     Dates: start: 20070101, end: 20091215

REACTIONS (4)
  - CHOLELITHIASIS [None]
  - CHOLECYSTITIS [None]
  - GASTROOESOPHAGEAL REFLUX DISEASE [None]
  - CROHN'S DISEASE [None]
